FAERS Safety Report 18659847 (Version 1)
Quarter: 2020Q4

REPORT INFORMATION
  Report Type: Spontaneous
  Country: US (occurrence: US)
  Receive Date: 20201223
  Receipt Date: 20201223
  Transmission Date: 20210114
  Serious: Yes (Hospitalization)
  Sender: FDA-Public Use
  Company Number: None

PATIENT
  Age: 68 Year
  Sex: Male
  Weight: 100 kg

DRUGS (1)
  1. LISINOPRIL (LISINOPRIL 40MG TAB) [Suspect]
     Active Substance: LISINOPRIL
     Indication: HYPERTENSION
     Route: 048
     Dates: start: 20200720, end: 20200729

REACTIONS (6)
  - Ventricular hypokinesia [None]
  - Swollen tongue [None]
  - Dyspnoea [None]
  - Mitral valve incompetence [None]
  - Respiratory failure [None]
  - Aortic valve sclerosis [None]

NARRATIVE: CASE EVENT DATE: 20200804
